FAERS Safety Report 4884384-6 (Version None)
Quarter: 2006Q1

REPORT INFORMATION
  Report Type: 
  Country: None (occurrence: None)
  Receive Date: 20060117
  Receipt Date: 20060117
  Transmission Date: 20060701
  Serious: Yes (Hospitalization)
  Sender: FDA-Public Use
  Company Number: None

PATIENT
  Age: 67 Year
  Sex: Female

DRUGS (8)
  1. COUMADIN [Suspect]
     Dosage: 2 MG ? PO
     Route: 048
     Dates: start: 20030701, end: 20040101
  2. FLONASE [Concomitant]
  3. FLOVENT [Concomitant]
  4. COMBIVENT [Concomitant]
  5. PROVENTIL [Concomitant]
  6. FLAGYL [Concomitant]
  7. VIBRAMYCIN [Concomitant]
  8. PREDNISONE [Concomitant]

REACTIONS (1)
  - GASTROINTESTINAL HAEMORRHAGE [None]
